FAERS Safety Report 24582914 (Version 2)
Quarter: 2025Q1

REPORT INFORMATION
  Report Type: Spontaneous
  Country: US (occurrence: US)
  Receive Date: 20241106
  Receipt Date: 20250227
  Transmission Date: 20250409
  Serious: No
  Sender: UCB
  Company Number: US-UCBSA-2023058258

PATIENT
  Sex: Female

DRUGS (5)
  1. VIMPAT [Suspect]
     Active Substance: LACOSAMIDE
     Indication: Seizure
  2. KEPPRA [Suspect]
     Active Substance: LEVETIRACETAM
     Indication: Seizure
  3. ZONISAMIDE [Suspect]
     Active Substance: ZONISAMIDE
     Indication: Seizure
  4. LAMICTAL [Suspect]
     Active Substance: LAMOTRIGINE
     Indication: Seizure
  5. TROFINETIDE [Suspect]
     Active Substance: TROFINETIDE
     Indication: Product used for unknown indication

REACTIONS (1)
  - Somnolence [Unknown]
